FAERS Safety Report 20022152 (Version 2)
Quarter: 2021Q4

REPORT INFORMATION
  Report Type: Spontaneous
  Country: US (occurrence: US)
  Receive Date: 20211102
  Receipt Date: 20211125
  Transmission Date: 20220303
  Serious: Yes (Other)
  Sender: FDA-Public Use
  Company Number: US-UROGEN PHARMA LTD.-2021-UGN-000087

PATIENT

DRUGS (5)
  1. JELMYTO [Suspect]
     Active Substance: MITOMYCIN
     Indication: Transitional cell cancer of the renal pelvis and ureter
     Dosage: ONE TIMES PER WEEK (INSTILLATION)
     Dates: start: 20211015, end: 20211015
  2. JELMYTO [Suspect]
     Active Substance: MITOMYCIN
     Dosage: UNK (INSTILLATION)
     Dates: start: 2021, end: 2021
  3. JELMYTO [Suspect]
     Active Substance: MITOMYCIN
     Dosage: UNK (INSTILLATION)
     Dates: start: 2021, end: 2021
  4. JELMYTO [Suspect]
     Active Substance: MITOMYCIN
     Dosage: UNK (INSTILLATION)
     Dates: start: 2021, end: 2021
  5. JELMYTO [Suspect]
     Active Substance: MITOMYCIN
     Dosage: UNK (INSTILLATION)
     Dates: start: 2021, end: 2021

REACTIONS (1)
  - Syncope [Recovered/Resolved]

NARRATIVE: CASE EVENT DATE: 20211015
